FAERS Safety Report 17080380 (Version 2)
Quarter: 2020Q1

REPORT INFORMATION
  Report Type: Spontaneous
  Country: IT (occurrence: IT)
  Receive Date: 20191127
  Receipt Date: 20200111
  Transmission Date: 20200409
  Serious: Yes (Hospitalization)
  Sender: FDA-Public Use
  Company Number: IT-TEVA-2019-IT-1141777

PATIENT
  Age: 97 Year
  Sex: Female

DRUGS (5)
  1. TICLOPIDINE [Suspect]
     Active Substance: TICLOPIDINE
     Indication: THROMBOSIS PROPHYLAXIS
     Dosage: 500 MG
     Route: 048
     Dates: start: 20190914, end: 20191007
  2. LANSOX [Concomitant]
     Active Substance: LANSOPRAZOLE
     Dosage: 30 MG
     Route: 048
  3. VENITRIN 10 MG/24 ORE CEROTTI TRANSDERMICI [Concomitant]
     Dosage: 10 MG
     Route: 062
  4. DUROGESIC 25 MICROGRAMMI/ORA CEROTTO TRANSDERMICO [Concomitant]
     Active Substance: FENTANYL
     Dosage: 50 MCG PER 1 WEEK
  5. NORVASC [Concomitant]
     Active Substance: AMLODIPINE BESYLATE
     Dosage: 10 MG
     Route: 048

REACTIONS (1)
  - Febrile neutropenia [Recovered/Resolved]

NARRATIVE: CASE EVENT DATE: 20191007
